FAERS Safety Report 14615041 (Version 2)
Quarter: 2018Q2

REPORT INFORMATION
  Report Type: Report from Study
  Country: AR (occurrence: AR)
  Receive Date: 20180308
  Receipt Date: 20180403
  Transmission Date: 20180711
  Serious: Yes (Other)
  Sender: FDA-Public Use
  Company Number: PHHY2018AR034168

PATIENT
  Age: 67 Year
  Sex: Female

DRUGS (2)
  1. COSENTYX [Suspect]
     Active Substance: SECUKINUMAB
     Indication: PSORIATIC ARTHROPATHY
     Dosage: 300 MG, UNK
     Route: 065
     Dates: start: 201709
  2. COSENTYX [Suspect]
     Active Substance: SECUKINUMAB
     Dosage: 2 DF (VIALS), QMO
     Route: 065

REACTIONS (6)
  - Muscle atrophy [Recovering/Resolving]
  - Pneumonia [Not Recovered/Not Resolved]
  - Muscular weakness [Recovering/Resolving]
  - Bone erosion [Not Recovered/Not Resolved]
  - Thyroid cancer [Not Recovered/Not Resolved]
  - Goitre [Unknown]

NARRATIVE: CASE EVENT DATE: 201709
